FAERS Safety Report 8775492 (Version 4)
Quarter: 2013Q2

REPORT INFORMATION
  Report Type: Report from Study
  Country: CH (occurrence: CH)
  Receive Date: 20120910
  Receipt Date: 20130628
  Transmission Date: 20140414
  Serious: Yes (Life-Threatening, Hospitalization, Other)
  Sender: FDA-Public Use
  Company Number: CH-GENZYME-CLOF-1002290

PATIENT
  Age: 62 Year
  Sex: Female
  Weight: 102 kg

DRUGS (9)
  1. EVOLTRA [Suspect]
     Indication: ACUTE MYELOID LEUKAEMIA
     Dosage: 20 MG, QD
     Route: 042
     Dates: start: 20120825
  2. EVOLTRA [Suspect]
     Dosage: 20 MG, UNK
     Route: 042
     Dates: start: 20120927
  3. CYTARABINE [Suspect]
     Indication: ACUTE MYELOID LEUKAEMIA
     Dosage: 400 MG, QD
     Route: 042
     Dates: start: 20120825
  4. CYTARABINE [Suspect]
     Dosage: 4000 MG, QD
     Route: 042
     Dates: start: 20120927
  5. IDARUBICIN [Suspect]
     Indication: ACUTE MYELOID LEUKAEMIA
     Dosage: 24 MG, QD
     Route: 042
     Dates: start: 20120825
  6. AMSACRINE [Suspect]
     Indication: ACUTE MYELOID LEUKAEMIA
     Dosage: 240 MG, UNK
     Route: 065
     Dates: start: 20120930
  7. CEFEPIME [Concomitant]
     Indication: MUCOSAL INFLAMMATION
     Dosage: 2 G, TID
     Route: 042
     Dates: start: 20120928
  8. CILASTATIN W [Concomitant]
     Indication: MUCOSAL INFLAMMATION
     Dosage: 500 MG, QID
     Route: 042
     Dates: start: 20121002
  9. PARENTERAL NUTRITION [Concomitant]
     Indication: PRODUCT USED FOR UNKNOWN INDICATION
     Dosage: UNK
     Route: 051

REACTIONS (4)
  - Erythema multiforme [Not Recovered/Not Resolved]
  - Neutropenic colitis [Recovered/Resolved]
  - Clostridial infection [Unknown]
  - Bone marrow failure [Unknown]
